FAERS Safety Report 17905754 (Version 1)
Quarter: 2020Q2

REPORT INFORMATION
  Report Type: Spontaneous
  Country: IT (occurrence: IT)
  Receive Date: 20200617
  Receipt Date: 20200617
  Transmission Date: 20200714
  Serious: Yes (Hospitalization, Other)
  Sender: FDA-Public Use
  Company Number: IT-TEVA-2020-IT-1511221

PATIENT
  Age: 56 Year
  Sex: Female

DRUGS (4)
  1. LINEZOLID. [Suspect]
     Active Substance: LINEZOLID
     Indication: NOCARDIOSIS
     Dosage: 1200 MILLIGRAM DAILY;
     Route: 065
  2. VORICONAZOLE. [Suspect]
     Active Substance: VORICONAZOLE
     Indication: ALTERNARIA INFECTION
     Dosage: 600 MILLIGRAM DAILY;
     Route: 048
  3. TACROLIMUS. [Suspect]
     Active Substance: TACROLIMUS
     Indication: IMMUNOSUPPRESSANT DRUG THERAPY
     Route: 065
  4. COTRIMOXAZOLE [Suspect]
     Active Substance: SULFAMETHOXAZOLE\TRIMETHOPRIM
     Indication: NOCARDIOSIS
     Dosage: 1600/320MG TWICE DAILY
     Route: 065

REACTIONS (10)
  - Mitral valve incompetence [Unknown]
  - Bone marrow toxicity [Unknown]
  - Alternaria infection [Recovered/Resolved]
  - Endocarditis [Recovered/Resolved]
  - Anaemia [Unknown]
  - Skin infection [Recovered/Resolved]
  - Off label use [Unknown]
  - Nocardiosis [Recovered/Resolved]
  - Pulmonary nocardiosis [Recovered/Resolved]
  - Chordae tendinae rupture [Unknown]
